FAERS Safety Report 23129681 (Version 3)
Quarter: 2023Q4

REPORT INFORMATION
  Report Type: Report from Study
  Country: US (occurrence: US)
  Receive Date: 20231031
  Receipt Date: 20231215
  Transmission Date: 20240110
  Serious: No
  Sender: FDA-Public Use
  Company Number: US-ABBVIE-5459036

PATIENT
  Sex: Female

DRUGS (2)
  1. VENCLEXTA [Suspect]
     Active Substance: VENETOCLAX
     Indication: Acute myeloid leukaemia
     Dosage: LAST ADMIN DATE-2023, MISSED DOSE
     Route: 048
     Dates: start: 20230929
  2. VENCLEXTA [Suspect]
     Active Substance: VENETOCLAX
     Indication: Acute myeloid leukaemia
     Dosage: FIRST ADMIN DATE-2023?LAST ADMIN DATE-2023
     Route: 048

REACTIONS (10)
  - Platelet count decreased [Unknown]
  - Decreased appetite [Unknown]
  - Ankle fracture [Unknown]
  - Diverticulitis [Unknown]
  - Blood glucose decreased [Unknown]
  - Paraesthesia [Unknown]
  - White blood cell count decreased [Unknown]
  - Red blood cell count decreased [Unknown]
  - Dyschezia [Recovering/Resolving]
  - Hypersomnia [Unknown]

NARRATIVE: CASE EVENT DATE: 20230101
